FAERS Safety Report 24453495 (Version 2)
Quarter: 2024Q4

REPORT INFORMATION
  Report Type: Report from Study
  Country: CA (occurrence: CA)
  Receive Date: 20241017
  Receipt Date: 20241018
  Transmission Date: 20250115
  Serious: No
  Sender: ROCHE
  Company Number: CA-ROCHE-3090402

PATIENT
  Age: 19 Year
  Sex: Female

DRUGS (9)
  1. RITUXAN [Suspect]
     Active Substance: RITUXIMAB
     Indication: Neuromyelitis optica spectrum disorder
     Dosage: INITIATED OUTSIDE OF RPAP
     Route: 042
     Dates: start: 201901, end: 20190909
  2. RITUXAN [Suspect]
     Active Substance: RITUXIMAB
     Indication: Paralysis
     Route: 042
     Dates: start: 20200430, end: 20200430
  3. RITUXAN [Suspect]
     Active Substance: RITUXIMAB
     Route: 042
     Dates: start: 20201111
  4. RITUXAN [Suspect]
     Active Substance: RITUXIMAB
     Route: 042
     Dates: start: 20210512
  5. RITUXAN [Suspect]
     Active Substance: RITUXIMAB
     Route: 042
     Dates: start: 20190909, end: 20201111
  6. RITUXAN [Suspect]
     Active Substance: RITUXIMAB
     Route: 042
  7. ACETAMINOPHEN [Concomitant]
     Active Substance: ACETAMINOPHEN
     Indication: Premedication
     Route: 048
  8. BENADRYL [Concomitant]
     Active Substance: DIPHENHYDRAMINE HYDROCHLORIDE
     Indication: Premedication
     Route: 048
  9. METHYLPREDNISOLONE [Concomitant]
     Active Substance: METHYLPREDNISOLONE
     Indication: Premedication
     Route: 042

REACTIONS (3)
  - Blood pressure diastolic decreased [Unknown]
  - Hypotension [Unknown]
  - Blood pressure diastolic abnormal [Unknown]

NARRATIVE: CASE EVENT DATE: 20220503
